FAERS Safety Report 15012829 (Version 1)
Quarter: 2018Q2

REPORT INFORMATION
  Report Type: Spontaneous
  Country: CA (occurrence: CA)
  Receive Date: 20180614
  Receipt Date: 20180614
  Transmission Date: 20180711
  Serious: Yes (Life-Threatening)
  Sender: FDA-Public Use
  Company Number: CA-TEVA-2018-CA-905999

PATIENT
  Age: 57 Year
  Sex: Female

DRUGS (9)
  1. NASONEX [Concomitant]
     Active Substance: MOMETASONE FUROATE
  2. SALINEX [Concomitant]
  3. ANTISTAX [Concomitant]
     Active Substance: VITIS VINIFERA FLOWERING TOP
  4. ELAVIL [Concomitant]
     Active Substance: AMITRIPTYLINE HYDROCHLORIDE
  5. PROMETRIUM [Concomitant]
     Active Substance: PROGESTERONE
  6. ESTROGEL [Concomitant]
     Active Substance: ESTRADIOL
  7. TEVA-CLARITHROMYCIN [Suspect]
     Active Substance: CLARITHROMYCIN
     Indication: SINUSITIS
     Route: 048
  8. OMEGA 3-6-9 [Concomitant]
     Active Substance: FISH OIL
  9. VITAMIN D [Concomitant]
     Active Substance: CHOLECALCIFEROL

REACTIONS (4)
  - Loss of consciousness [Recovering/Resolving]
  - Somnolence [Recovering/Resolving]
  - Intentional overdose [Recovering/Resolving]
  - Hallucination [Recovering/Resolving]
